FAERS Safety Report 9014147 (Version 1)
Quarter: 2013Q1

REPORT INFORMATION
  Report Type: Spontaneous
  Country: US (occurrence: US)
  Receive Date: 20130115
  Receipt Date: 20130115
  Transmission Date: 20140127
  Serious: Yes (Other)
  Sender: FDA-Public Use
  Company Number: US-MERCK-1301USA003575

PATIENT
  Age: 7 Year
  Sex: Female

DRUGS (1)
  1. SINGULAIR [Suspect]
     Indication: ALLERGIC COUGH
     Dosage: 1 TAB, UNK
     Route: 048

REACTIONS (3)
  - Irritability [Unknown]
  - Excessive eye blinking [Unknown]
  - Agitation [Unknown]
